FAERS Safety Report 14666511 (Version 2)
Quarter: 2018Q2

REPORT INFORMATION
  Report Type: Spontaneous
  Country: US (occurrence: US)
  Receive Date: 20180321
  Receipt Date: 20180420
  Transmission Date: 20180711
  Serious: No
  Sender: FDA-Public Use
  Company Number: US-ASTRAZENECA-2018SE22911

PATIENT
  Sex: Male
  Weight: 53.5 kg

DRUGS (2)
  1. ALBUTEROL. [Concomitant]
     Active Substance: ALBUTEROL
     Indication: DYSPNOEA
  2. PULMICORT FLEXHALER [Suspect]
     Active Substance: BUDESONIDE
     Indication: CHRONIC OBSTRUCTIVE PULMONARY DISEASE
     Dosage: FLEXHALER 180 MCG, TWO TIMES A DAY.
     Route: 055
     Dates: start: 20180213

REACTIONS (3)
  - Dyspnoea [Not Recovered/Not Resolved]
  - Weight decreased [Unknown]
  - Product quality issue [Unknown]
